FAERS Safety Report 6225695-1 (Version None)
Quarter: 2009Q2

REPORT INFORMATION
  Report Type: 
  Country: None (occurrence: None)
  Receive Date: 20090612
  Receipt Date: 20090428
  Transmission Date: 20091009
  Serious: No
  Sender: FDA-Public Use
  Company Number: US-ABBOTT-09P-163-0570789-00

PATIENT
  Sex: Female
  Weight: 117.13 kg

DRUGS (10)
  1. HUMIRA [Suspect]
     Indication: RHEUMATOID ARTHRITIS
     Route: 058
     Dates: start: 20090417
  2. DIOVAN [Concomitant]
     Indication: DRUG USE FOR UNKNOWN INDICATION
     Dates: start: 20090420
  3. CARVEDILOL [Concomitant]
     Indication: DRUG USE FOR UNKNOWN INDICATION
     Route: 048
  4. PREDNISONE [Concomitant]
     Indication: RESPIRATORY DISORDER
     Route: 048
     Dates: start: 20090412, end: 20090426
  5. LABETALOL HCL [Concomitant]
     Indication: DRUG USE FOR UNKNOWN INDICATION
     Route: 048
  6. METHOTREXATE [Concomitant]
     Indication: RHEUMATOID ARTHRITIS
     Route: 048
  7. NEXIUM [Concomitant]
     Indication: GASTROOESOPHAGEAL REFLUX DISEASE
  8. OXBUTYNIN [Concomitant]
     Indication: HYPERTONIC BLADDER
     Route: 048
  9. GABAPENTIN [Concomitant]
     Indication: NERVE INJURY
     Route: 048
  10. INHALER [Concomitant]
     Indication: DYSPNOEA
     Route: 055

REACTIONS (3)
  - BLOOD PRESSURE INCREASED [None]
  - FEELING JITTERY [None]
  - PALPITATIONS [None]
